FAERS Safety Report 5613020-6 (Version None)
Quarter: 2008Q1

REPORT INFORMATION
  Report Type: 
  Country: None (occurrence: None)
  Receive Date: 20080204
  Receipt Date: 20080125
  Transmission Date: 20080703
  Serious: No
  Sender: FDA-Public Use
  Company Number: US-BAXTER-2008BH000343

PATIENT
  Age: 54 Year
  Sex: Female
  Weight: 58 kg

DRUGS (18)
  1. HEPARIN SODIUM [Suspect]
     Indication: HAEMODIALYSIS
     Route: 040
     Dates: start: 20080107, end: 20080107
  2. HEPARIN SODIUM [Suspect]
     Route: 040
     Dates: start: 20080107, end: 20080107
  3. HEPARIN SODIUM [Suspect]
     Route: 042
     Dates: start: 20080107, end: 20080107
  4. LOTREL [Concomitant]
     Indication: HYPERTENSION
     Dosage: DOSE UNIT:UNKNOWN
     Route: 048
     Dates: start: 20071230
  5. GEMFIBROZIL [Concomitant]
     Indication: BLOOD CHOLESTEROL
     Route: 048
     Dates: start: 20071223
  6. LOPRESSOR [Concomitant]
     Indication: HYPERTENSION
     Route: 048
     Dates: start: 20071217
  7. COLACE [Concomitant]
     Indication: LAXATIVE SUPPORTIVE CARE
     Route: 048
     Dates: start: 20070730
  8. FORMOTERAL [Concomitant]
     Indication: ASTHMA
     Route: 055
     Dates: start: 20070427
  9. GLIMEPIRIDE [Concomitant]
     Indication: DIABETES MELLITUS
     Route: 048
     Dates: start: 20070427
  10. PHOSLO [Concomitant]
     Indication: BLOOD PHOSPHORUS
     Route: 048
     Dates: start: 20070427
  11. FOLIC ACID [Concomitant]
     Indication: VITAMIN SUPPLEMENTATION
     Route: 048
     Dates: start: 20051001
  12. NAPROVITE [Concomitant]
     Indication: VITAMIN SUPPLEMENTATION
     Route: 048
     Dates: start: 20051001
  13. ALBUTEROL [Concomitant]
     Indication: ASTHMA
     Route: 055
     Dates: start: 20051001
  14. ESOMEPRAZOLE [Concomitant]
     Indication: DYSPEPSIA
     Route: 048
     Dates: start: 20051001
  15. RENAGEL [Concomitant]
     Indication: HYPERPHOSPHATAEMIA
     Route: 048
  16. EPO [Concomitant]
     Indication: ANAEMIA
     Route: 042
     Dates: start: 20071230
  17. ZEMPLAR [Concomitant]
     Indication: VITAMIN D
     Route: 042
     Dates: start: 20080121
  18. ACTIVASE [Concomitant]
     Route: 042
     Dates: start: 20071003

REACTIONS (4)
  - HYPOAESTHESIA ORAL [None]
  - PARAESTHESIA [None]
  - PHARYNGEAL HYPOAESTHESIA [None]
  - VOMITING [None]
